FAERS Safety Report 4591966-8 (Version None)
Quarter: 2005Q1

REPORT INFORMATION
  Report Type: 
  Country: None (occurrence: None)
  Receive Date: 20050222
  Receipt Date: 20050205
  Transmission Date: 20050727
  Serious: Yes (Other)
  Sender: FDA-Public Use
  Company Number: 2005018379

PATIENT
  Age: 79 Year
  Sex: Male
  Weight: 92.9874 kg

DRUGS (6)
  1. CELEBREX [Suspect]
     Indication: ARTHRITIS
     Dosage: 200 MG (200I MG, 1 IN 1 D), ORAL
     Route: 048
     Dates: start: 20040901, end: 20041101
  2. CLOPIDOGREL BISULFATE [Suspect]
     Indication: TRANSIENT ISCHAEMIC ATTACK
     Dosage: ORAL
     Route: 048
     Dates: start: 20041101, end: 20040101
  3. PROPACET 100 [Concomitant]
  4. ACETAMINOPHEN [Concomitant]
  5. BISOPROLOL FUMARATE AND HYDROCHLOROTHIAZIDE [Concomitant]
  6. SIMVASTATIN [Concomitant]

REACTIONS (2)
  - HAEMORRHAGE [None]
  - TRANSIENT ISCHAEMIC ATTACK [None]
